FAERS Safety Report 6158033-3 (Version None)
Quarter: 2009Q2

REPORT INFORMATION
  Report Type: 
  Country: None (occurrence: None)
  Receive Date: 20090414
  Receipt Date: 20090414
  Transmission Date: 20091009
  Serious: Yes (Death, Hospitalization)
  Sender: FDA-Public Use
  Company Number: None

PATIENT
  Sex: Female

DRUGS (1)
  1. REVLIMID [Suspect]
     Indication: MULTIPLE MYELOMA
     Dosage: REVLIMID 10MG QD 21D/28D ORAL
     Route: 048

REACTIONS (4)
  - DISEASE PROGRESSION [None]
  - FAILURE TO THRIVE [None]
  - PANCYTOPENIA [None]
  - THROMBOCYTOPENIA [None]
